FAERS Safety Report 14047865 (Version 1)
Quarter: 2017Q4

REPORT INFORMATION
  Report Type: Spontaneous
  Country: US (occurrence: US)
  Receive Date: 20171005
  Receipt Date: 20171005
  Transmission Date: 20180321
  Serious: Yes (Life-Threatening, Hospitalization)
  Sender: FDA-Public Use
  Company Number: None

PATIENT
  Weight: 84.15 kg

DRUGS (3)
  1. INCRUSE ELLIPTA [Concomitant]
     Active Substance: UMECLIDINIUM BROMIDE
  2. ELLIPTA [Concomitant]
  3. AIRDUO RESPICLICK [Suspect]
     Active Substance: FLUTICASONE PROPIONATE\SALMETEROL XINAFOATE
     Indication: EMPHYSEMA
     Dosage: ?          QUANTITY:1 PUFF(S);?RESPIRATORY (INHLATION)
     Route: 055
     Dates: start: 20170929, end: 20171003

REACTIONS (6)
  - Dizziness [None]
  - Dyspnoea [None]
  - Blood pressure decreased [None]
  - Heart rate decreased [None]
  - Hypoaesthesia [None]
  - Ventricular extrasystoles [None]

NARRATIVE: CASE EVENT DATE: 20171003
